FAERS Safety Report 15448465 (Version 2)
Quarter: 2018Q4

REPORT INFORMATION
  Report Type: Spontaneous
  Country: US (occurrence: US)
  Receive Date: 20180929
  Receipt Date: 20181012
  Transmission Date: 20190204
  Serious: No
  Sender: FDA-Public Use
  Company Number: PHHY2018US111624

PATIENT
  Sex: Female

DRUGS (1)
  1. SYSTANE ULTRA [Suspect]
     Active Substance: POLYETHYLENE GLYCOL 400\PROPYLENE GLYCOL
     Indication: PRODUCT USED FOR UNKNOWN INDICATION
     Dosage: UNK
     Route: 047
     Dates: start: 20180926, end: 20180926

REACTIONS (8)
  - Eye irritation [Unknown]
  - Ocular hyperaemia [Unknown]
  - Vision blurred [Unknown]
  - Eye swelling [Unknown]
  - Abnormal sensation in eye [Recovering/Resolving]
  - Eye discharge [Recovering/Resolving]
  - Dry eye [Unknown]
  - Eye allergy [Unknown]

NARRATIVE: CASE EVENT DATE: 20180926
